FAERS Safety Report 22033022 (Version 2)
Quarter: 2023Q2

REPORT INFORMATION
  Report Type: Spontaneous
  Country: JP (occurrence: JP)
  Receive Date: 20230224
  Receipt Date: 20230421
  Transmission Date: 20230721
  Serious: Yes (Life-Threatening, Hospitalization, Other)
  Sender: FDA-Public Use
  Company Number: JP-MYLANLABS-2023M1017013

PATIENT
  Age: 30 Year
  Sex: Female
  Weight: 58 kg

DRUGS (12)
  1. CARBOPLATIN [Suspect]
     Active Substance: CARBOPLATIN
     Indication: Breast cancer
     Dosage: 200 MILLIGRAM X 1 DOSE (DAILY DOSE), KEYTRUDA+PACLITAXEL+CARBOPLATIN THERAPY
     Route: 042
     Dates: start: 20221109, end: 20221109
  2. CARBOPLATIN [Suspect]
     Active Substance: CARBOPLATIN
     Dosage: 200 MILLIGRAM X 1 DOSE (DAILY DOSE), PACLITAXEL+CARBOPLATIN
     Route: 042
     Dates: start: 20221130, end: 20221130
  3. CARBOPLATIN [Suspect]
     Active Substance: CARBOPLATIN
     Dosage: 200 MILLIGRAM X 1 DOSE (DAILY DOSE), KEYTRUDA (2ND)+PACLITAXEL+CARBOPLATIN THERAPY
     Route: 042
     Dates: start: 20221221, end: 20221221
  4. CARBOPLATIN [Suspect]
     Active Substance: CARBOPLATIN
     Dosage: 54 MILLILITER X 1 DOSE (DAILY DOSE), START THE 4TH COURSE OF PACLITAXEL+CARBOPLATIN (10TH CARBOPLATI
     Route: 042
     Dates: start: 20230118, end: 20230118
  5. PACLITAXEL [Suspect]
     Active Substance: PACLITAXEL
     Indication: Breast cancer
     Dosage: 123 MILLIGRAM X 1 DOSE (DAILY DOSE), KEYTRUDA+PACLITAXEL+CARBOPLATIN THERAPY
     Route: 042
     Dates: start: 20221109, end: 20221109
  6. PACLITAXEL [Suspect]
     Active Substance: PACLITAXEL
     Dosage: 123 MILLIGRAM X 1 DOSE (DAILY DOSE), PACLITAXEL+CARBOPLATIN
     Route: 042
     Dates: start: 20221130, end: 20221130
  7. PACLITAXEL [Suspect]
     Active Substance: PACLITAXEL
     Dosage: 123 MILLIGRAM X 1 DOSE (DAILY DOSE), KEYTRUDA (2ND)+PACLITAXEL+CARBOPLATIN THERAPY
     Route: 042
     Dates: start: 20221221, end: 20221221
  8. PACLITAXEL [Suspect]
     Active Substance: PACLITAXEL
     Dosage: 123 MILLIGRAM X 1 DOSE (DAILY DOSE), START THE 4TH COURSE OF PACLITAXEL+CARBOPLATIN (10TH CARBOPLATI
     Route: 042
     Dates: start: 20230118, end: 20230118
  9. PALONOSETRON [Concomitant]
     Active Substance: PALONOSETRON
     Indication: Product used for unknown indication
     Dosage: UNK
     Route: 042
  10. DEXAMETHASONE SODIUM PHOSPHATE [Concomitant]
     Active Substance: DEXAMETHASONE SODIUM PHOSPHATE
     Indication: Product used for unknown indication
     Dosage: UNK
     Route: 042
  11. FAMOTIDINE [Concomitant]
     Active Substance: FAMOTIDINE
     Indication: Product used for unknown indication
     Dosage: UNK
     Route: 042
  12. HEPARINOID [Concomitant]
     Indication: Product used for unknown indication
     Dosage: UNK
     Route: 062

REACTIONS (3)
  - Anaphylactic shock [Recovered/Resolved]
  - Erythema multiforme [Recovering/Resolving]
  - Drug eruption [Recovering/Resolving]

NARRATIVE: CASE EVENT DATE: 20230118
